FAERS Safety Report 9924265 (Version 1)
Quarter: 2014Q1

REPORT INFORMATION
  Report Type: Spontaneous
  Country: US (occurrence: US)
  Receive Date: 20140226
  Receipt Date: 20140226
  Transmission Date: 20141002
  Serious: Yes (Death)
  Sender: FDA-Public Use
  Company Number: US-ROCHE-1355264

PATIENT
  Age: 70 Year
  Sex: Female
  Weight: 64 kg

DRUGS (9)
  1. BONIVA [Suspect]
     Indication: OSTEOPENIA
     Route: 065
     Dates: start: 20090828, end: 20100401
  2. PRAMIPEXOLE [Concomitant]
     Indication: PARKINSON^S DISEASE
     Route: 048
     Dates: start: 20081121
  3. AZILECT [Concomitant]
     Indication: PARKINSON^S DISEASE
     Route: 048
     Dates: start: 20090512
  4. SINEMET-PLUS [Concomitant]
     Indication: PARKINSON^S DISEASE
     Dosage: 1.5 X 25 MG-100 MG
     Route: 048
     Dates: start: 20080814
  5. RECLAST [Concomitant]
     Indication: OSTEOPENIA
     Dosage: 5 MG/100 ML
     Route: 042
     Dates: start: 20100517
  6. RESTORIL (UNITED STATES) [Concomitant]
     Indication: INSOMNIA
     Route: 048
     Dates: start: 20101019
  7. DECADRON [Concomitant]
     Route: 048
     Dates: start: 20120607
  8. TEMODAR [Concomitant]
     Route: 065
     Dates: start: 20120611
  9. ZOFRAN [Concomitant]

REACTIONS (1)
  - Death [Fatal]
